FAERS Safety Report 7741830-8 (Version None)
Quarter: 2011Q3

REPORT INFORMATION
  Report Type: 
  Country: None (occurrence: None)
  Receive Date: 20110906
  Receipt Date: 20110824
  Transmission Date: 20111222
  Serious: Yes (Disabling)
  Sender: FDA-Public Use
  Company Number: 2011MA008359

PATIENT
  Age: 42 Year
  Sex: Female

DRUGS (1)
  1. VENLAFAXINE HCL [Suspect]
     Indication: DEPRESSION
     Dosage: 375 MG;PO
     Route: 048
     Dates: start: 20020601

REACTIONS (3)
  - PERIODONTAL DISEASE [None]
  - DRY MOUTH [None]
  - TOOTH LOSS [None]
